FAERS Safety Report 25233438 (Version 1)
Quarter: 2025Q2

REPORT INFORMATION
  Report Type: Spontaneous
  Country: US (occurrence: US)
  Receive Date: 20250424
  Receipt Date: 20250424
  Transmission Date: 20250716
  Serious: Yes (Hospitalization, Disabling)
  Sender: SANOFI AVENTIS
  Company Number: US-SA-2025SA112365

PATIENT
  Sex: Female
  Weight: 105.91 kg

DRUGS (34)
  1. DUPIXENT [Suspect]
     Active Substance: DUPILUMAB
     Indication: Dermatitis atopic
     Dosage: 300 MG, QOW
     Route: 058
     Dates: start: 202108, end: 20230714
  2. DUPIXENT [Suspect]
     Active Substance: DUPILUMAB
     Dosage: 300 MG, QOW
     Route: 058
     Dates: start: 20230308, end: 20230921
  3. PROVENTIL HFA [Concomitant]
     Active Substance: ALBUTEROL SULFATE
     Indication: Wheezing
     Dates: start: 20230622
  4. VENTOLIN HFA [Concomitant]
     Active Substance: ALBUTEROL SULFATE
     Indication: Wheezing
     Dates: start: 20230622
  5. PROAIR HFA [Concomitant]
     Active Substance: ALBUTEROL SULFATE
     Indication: Wheezing
     Dates: start: 20230622
  6. FOSAMAX [Concomitant]
     Active Substance: ALENDRONATE SODIUM
     Dosage: UNK UNK, QW
     Route: 048
     Dates: start: 20230622, end: 20231222
  7. DIPROLENE AF [Concomitant]
     Active Substance: BETAMETHASONE DIPROPIONATE
     Indication: Rash macular
     Dates: start: 20221028, end: 20240923
  8. DESYREL [Concomitant]
     Active Substance: TRAZODONE HYDROCHLORIDE
     Route: 048
     Dates: start: 20160204, end: 20250324
  9. ZOLOFT [Concomitant]
     Active Substance: SERTRALINE HYDROCHLORIDE
     Dosage: 150 MG, QD
     Route: 048
     Dates: start: 20010101, end: 20250324
  10. CRESTOR [Concomitant]
     Active Substance: ROSUVASTATIN CALCIUM
     Route: 048
     Dates: start: 20230622, end: 20240513
  11. SEROQUEL [Concomitant]
     Active Substance: QUETIAPINE FUMARATE
     Dosage: 75 MG, QD
     Dates: start: 20210601, end: 20250303
  12. GLYCOLAX [Concomitant]
     Active Substance: POLYETHYLENE GLYCOL 3350
     Dosage: 8.5 G, QD
     Dates: start: 20230602
  13. NALTREXONE [Concomitant]
     Active Substance: NALTREXONE
     Route: 048
     Dates: start: 20230526, end: 20230908
  14. BACTROBAN [Concomitant]
     Active Substance: MUPIROCIN CALCIUM
     Indication: Skin ulcer
     Route: 061
     Dates: start: 20230317, end: 20240716
  15. METROCREAM [Concomitant]
     Active Substance: METRONIDAZOLE
     Dates: start: 20220503, end: 20240929
  16. METHOTREXATE [Concomitant]
     Active Substance: METHOTREXATE
     Dosage: 15 MG, QW
     Dates: start: 20230615, end: 20230814
  17. ATIVAN [Concomitant]
     Active Substance: LORAZEPAM
     Dosage: 0.5 MG, QID
     Dates: start: 20210803, end: 20250321
  18. LINZESS [Concomitant]
     Active Substance: LINACLOTIDE
     Dates: start: 20230626, end: 20230912
  19. LAMICTAL XR [Concomitant]
     Active Substance: LAMOTRIGINE
     Dates: start: 20210817
  20. GARAMYCIN [Concomitant]
     Active Substance: GENTAMICIN SULFATE
     Indication: Bacterial infection
     Dosage: 1 G, BID
     Route: 061
     Dates: start: 20230314, end: 20240214
  21. GABAPENTIN [Concomitant]
     Active Substance: GABAPENTIN
     Dosage: 900 MG, HS
     Dates: start: 20230526, end: 20231218
  22. FOLVITE [Concomitant]
     Active Substance: FOLIC ACID
     Dosage: 1 MG, QD
     Dates: start: 20220506, end: 20231016
  23. FLONASE [Concomitant]
     Active Substance: FLUTICASONE PROPIONATE
     Dosage: 1 SPRAY, QD
     Route: 045
     Dates: start: 20220426, end: 20231222
  24. AEROSPAN [Concomitant]
     Active Substance: FLUNISOLIDE
     Dosage: 160 UG, QD
     Dates: end: 20231222
  25. AVENOVA [HYPOCHLOROUS ACID] [Concomitant]
  26. COLACE [Concomitant]
     Active Substance: DOCUSATE SODIUM
     Indication: Constipation
     Dosage: 200 MG, QD
     Route: 048
     Dates: start: 20230721, end: 20230811
  27. VITAMIN B12 [Concomitant]
     Active Substance: CYANOCOBALAMIN
     Dosage: UNK UNK, QD
     Dates: end: 20230912
  28. KLONOPIN [Concomitant]
     Active Substance: CLONAZEPAM
     Indication: Anxiety
     Dates: start: 20230606, end: 20250221
  29. CHOLECALCIFEROL [Concomitant]
     Active Substance: CHOLECALCIFEROL
     Dosage: 2000 IU, QD
     Route: 048
     Dates: end: 20230912
  30. VRAYLAR [Concomitant]
     Active Substance: CARIPRAZINE
     Dosage: UNK UNK, QD
     Dates: start: 20220111, end: 20250324
  31. WELLBUTRIN XL [Concomitant]
     Active Substance: BUPROPION HYDROCHLORIDE
     Dosage: UNK UNK, QD
     Dates: start: 20160307, end: 20240625
  32. GLUCOPHAGE [Concomitant]
     Active Substance: METFORMIN HYDROCHLORIDE
     Dosage: UNK UNK, QD
     Dates: start: 20230721, end: 20230811
  33. INDERAL [Concomitant]
     Active Substance: PROPRANOLOL HYDROCHLORIDE
     Dosage: UNK UNK, QD
     Route: 048
     Dates: start: 20230717, end: 20231110
  34. SENOKOT [Concomitant]
     Active Substance: SENNOSIDES
     Indication: Constipation
     Route: 048
     Dates: start: 20230721, end: 20230811

REACTIONS (2)
  - Fibula fracture [Recovered/Resolved]
  - Fall [Recovered/Resolved]

NARRATIVE: CASE EVENT DATE: 20230718
